FAERS Safety Report 8408102-X (Version None)
Quarter: 2012Q2

REPORT INFORMATION
  Report Type: 
  Country: None (occurrence: None)
  Receive Date: 20120323
  Receipt Date: 20110420
  Transmission Date: 20120825
  Serious: Yes (Other)
  Sender: FDA-Public Use
  Company Number: 163-21880-11042650

PATIENT
  Age: 70 Year
  Sex: Female

DRUGS (3)
  1. REVLIMID [Suspect]
     Indication: MULTIPLE MYELOMA
     Dosage: 15 MG, DAILY X 21 DAYS, PO 25 MG, DAILY X 21 DAYS, PO 15 MG, DAILY X 21 DAYS, PO
     Route: 048
     Dates: start: 20081008, end: 20081231
  2. REVLIMID [Suspect]
     Indication: MULTIPLE MYELOMA
     Dosage: 15 MG, DAILY X 21 DAYS, PO 25 MG, DAILY X 21 DAYS, PO 15 MG, DAILY X 21 DAYS, PO
     Route: 048
     Dates: start: 20081231, end: 20090611
  3. REVLIMID [Suspect]
     Indication: MULTIPLE MYELOMA
     Dosage: 15 MG, DAILY X 21 DAYS, PO 25 MG, DAILY X 21 DAYS, PO 15 MG, DAILY X 21 DAYS, PO
     Route: 048
     Dates: start: 20090611, end: 20110419

REACTIONS (1)
  - HAEMOGLOBIN DECREASED [None]
